FAERS Safety Report 4576829-6 (Version None)
Quarter: 2005Q1

REPORT INFORMATION
  Report Type: 
  Country: None (occurrence: None)
  Receive Date: 20050207
  Receipt Date: 20050131
  Transmission Date: 20050727
  Serious: Yes (Other)
  Sender: FDA-Public Use
  Company Number: USA-2005-0018613

PATIENT
  Age: 16 Year
  Sex: Male

DRUGS (1)
  1. OXYCONTIN [Suspect]

REACTIONS (10)
  - ABDOMINAL PAIN UPPER [None]
  - DRUG ABUSER [None]
  - EUPHORIC MOOD [None]
  - FEELING HOT AND COLD [None]
  - HEADACHE [None]
  - HYPOAESTHESIA [None]
  - INDIFFERENCE [None]
  - LOSS OF CONSCIOUSNESS [None]
  - MEMORY IMPAIRMENT [None]
  - TREMOR [None]
